FAERS Safety Report 17214125 (Version 1)
Quarter: 2019Q4

REPORT INFORMATION
  Report Type: Spontaneous
  Country: GB (occurrence: GB)
  Receive Date: 20191230
  Receipt Date: 20191230
  Transmission Date: 20200122
  Serious: Yes (Life-Threatening, Hospitalization, Other)
  Sender: FDA-Public Use
  Company Number: GB-LEO PHARMA-327273

PATIENT
  Age: 55 Year
  Sex: Male
  Weight: 82 kg

DRUGS (1)
  1. PICATO [Suspect]
     Active Substance: INGENOL MEBUTATE
     Indication: ACTINIC KERATOSIS
     Route: 061
     Dates: start: 20161104, end: 20161107

REACTIONS (4)
  - Application site swelling [Recovered/Resolved with Sequelae]
  - Application site inflammation [Not Recovered/Not Resolved]
  - Eye swelling [Recovered/Resolved with Sequelae]
  - Obstructive airways disorder [Recovered/Resolved with Sequelae]

NARRATIVE: CASE EVENT DATE: 20161104
